FAERS Safety Report 4367180-8 (Version None)
Quarter: 2004Q2

REPORT INFORMATION
  Report Type: 
  Country: None (occurrence: None)
  Receive Date: 20040528
  Receipt Date: 20040521
  Transmission Date: 20050107
  Serious: Yes (Hospitalization)
  Sender: FDA-Public Use
  Company Number: PHBS2004GR06653

PATIENT
  Age: 18 Month
  Sex: Female

DRUGS (1)
  1. EXELON [Suspect]
     Dosage: 6 MG, ONCE/SINGLE
     Route: 048
     Dates: start: 20040521, end: 20040521

REACTIONS (4)
  - ACCIDENTAL EXPOSURE [None]
  - ACCIDENTAL OVERDOSE [None]
  - SOMNOLENCE [None]
  - VOMITING [None]
